FAERS Safety Report 5040146-0 (Version None)
Quarter: 2006Q2

REPORT INFORMATION
  Report Type: 
  Country: None (occurrence: None)
  Receive Date: 20060630
  Receipt Date: 20060412
  Transmission Date: 20061013
  Serious: Yes (Hospitalization)
  Sender: FDA-Public Use
  Company Number: HQWYE821713APR06

PATIENT
  Sex: Female
  Weight: 57 kg

DRUGS (13)
  1. ENBREL [Suspect]
     Indication: RHEUMATOID ARTHRITIS
     Route: 058
     Dates: start: 20050421
  2. VOLTAREN [Concomitant]
     Indication: RHEUMATOID ARTHRITIS
     Route: 048
     Dates: start: 20000228
  3. TAGAMET [Concomitant]
     Indication: DIABETES MELLITUS
     Route: 048
  4. DIOVAN [Concomitant]
     Route: 048
  5. NORVASC [Concomitant]
     Route: 048
  6. ENTERONON [Concomitant]
     Route: 048
  7. PENFILL N [Concomitant]
     Route: 058
  8. LANSOPRAZOLE [Concomitant]
     Dosage: UNKNOWN
  9. AMOXICILLIN [Concomitant]
     Dosage: UNKNOWN
  10. CLARITHROMYCIN [Concomitant]
     Dosage: UNKNOWN
  11. METHAPHYLLIN [Concomitant]
  12. PREDONINE [Concomitant]
     Indication: RHEUMATOID ARTHRITIS
     Dates: start: 20011214
  13. NOVORAPID [Concomitant]

REACTIONS (4)
  - CELL MARKER INCREASED [None]
  - DERMATITIS INFECTED [None]
  - INTERSTITIAL LUNG DISEASE [None]
  - PULMONARY FIBROSIS [None]
